FAERS Safety Report 12232831 (Version 1)
Quarter: 2016Q2

REPORT INFORMATION
  Report Type: Report from Study
  Country: US (occurrence: US)
  Receive Date: 20160402
  Receipt Date: 20160402
  Transmission Date: 20160815
  Serious: Yes (Other)
  Sender: FDA-Public Use
  Company Number: US-AMGEN-USASL2016038915

PATIENT
  Age: 74 Year
  Sex: Female

DRUGS (1)
  1. PROLIA [Suspect]
     Active Substance: DENOSUMAB
     Indication: OSTEOPOROSIS
     Dosage: UNK
     Route: 065

REACTIONS (15)
  - Ear pain [Unknown]
  - Musculoskeletal discomfort [Unknown]
  - Pruritus [Unknown]
  - Abdominal discomfort [Unknown]
  - Back pain [Recovered/Resolved]
  - Pain in jaw [Unknown]
  - Gingival pain [Unknown]
  - Hypoacusis [Unknown]
  - Pain [Unknown]
  - Dyspepsia [Unknown]
  - Asthma [Unknown]
  - Nausea [Unknown]
  - Vomiting [Unknown]
  - Blood urine present [Unknown]
  - Dysuria [Unknown]
